FAERS Safety Report 8370067-7 (Version None)
Quarter: 2012Q1

REPORT INFORMATION
  Report Type: 
  Country: None (occurrence: None)
  Receive Date: 20120323
  Receipt Date: 20110613
  Transmission Date: 20120608
  Serious: No
  Sender: FDA-Public Use
  Company Number: 163-21880-11061939

PATIENT
  Age: 91 Year
  Sex: Female
  Weight: 52.6173 kg

DRUGS (13)
  1. NAMENDA [Concomitant]
  2. ARICEPT [Concomitant]
  3. SYNTHROID [Concomitant]
  4. NEXIUM (ESOMEPRASOLE) [Concomitant]
  5. REVLIMID [Suspect]
     Indication: MULTIPLE MYELOMA
     Dosage: 10 MG, DAYS 2-21, PO
     Route: 048
     Dates: start: 20110601
  6. REVLIMID [Suspect]
     Indication: MULTIPLE MYELOMA
     Dosage: 10 MG, DAYS 2-21, PO
     Route: 048
     Dates: start: 20110501
  7. DEXAMETHASONE [Concomitant]
  8. MOBIC [Concomitant]
  9. VASOTEC [Concomitant]
  10. LOPRESSOR [Concomitant]
  11. NORVASC [Concomitant]
  12. PRAVACHOL [Concomitant]
  13. EFFEXOR [Concomitant]

REACTIONS (2)
  - RESTLESSNESS [None]
  - TREMOR [None]
